FAERS Safety Report 10349209 (Version 3)
Quarter: 2014Q3

REPORT INFORMATION
  Report Type: Spontaneous
  Country: US (occurrence: US)
  Receive Date: 20140730
  Receipt Date: 20140811
  Transmission Date: 20150326
  Serious: Yes (Other)
  Sender: FDA-Public Use
  Company Number: US-BEH-2012033489

PATIENT
  Sex: Male

DRUGS (2)
  1. PRIVIGEN [Suspect]
     Active Substance: HUMAN IMMUNOGLOBULIN G
     Dosage: ??-???-2005
     Route: 042
  2. PRIVIGEN [Suspect]
     Active Substance: HUMAN IMMUNOGLOBULIN G
     Indication: PRIMARY IMMUNODEFICIENCY SYNDROME
     Dosage: JAN-2008 TO OCT 2008
     Route: 042

REACTIONS (9)
  - Nausea [Unknown]
  - Photophobia [Unknown]
  - Vomiting [Unknown]
  - Headache [Unknown]
  - Migraine [Unknown]
  - Meningitis aseptic [Unknown]
  - Migraine [Unknown]
  - Pyrexia [Unknown]
  - Neck pain [Unknown]

NARRATIVE: CASE EVENT DATE: 2005
